FAERS Safety Report 8438393 (Version 4)
Quarter: 2013Q1

REPORT INFORMATION
  Report Type: Report from Study
  Country: US (occurrence: US)
  Receive Date: 20120302
  Receipt Date: 20130228
  Transmission Date: 20140127
  Serious: Yes (Hospitalization)
  Sender: FDA-Public Use
  Company Number: US-ABBOTT-12P-163-0908635-01

PATIENT
  Sex: Female
  Weight: 108.05 kg

DRUGS (7)
  1. HUMIRA [Suspect]
     Indication: PSORIASIS
     Route: 058
     Dates: start: 20071025, end: 20071025
  2. HUMIRA [Suspect]
     Route: 058
  3. HUMIRA [Suspect]
     Route: 058
     Dates: start: 20100416
  4. ASPIRIN [Concomitant]
     Indication: TRANSIENT ISCHAEMIC ATTACK
     Dates: start: 20081110
  5. PLAVIX [Concomitant]
     Indication: TRANSIENT ISCHAEMIC ATTACK
     Dates: start: 20081110
  6. CILOSTAZOL [Concomitant]
     Indication: TRANSIENT ISCHAEMIC ATTACK
     Dates: start: 20110201
  7. METHOTREXATE [Concomitant]
     Indication: PSORIASIS
     Dates: start: 199907

REACTIONS (1)
  - Transient ischaemic attack [Recovered/Resolved]
